FAERS Safety Report 21605494 (Version 1)
Quarter: 2022Q4

REPORT INFORMATION
  Report Type: Report from Study
  Country: US (occurrence: US)
  Receive Date: 20221116
  Receipt Date: 20221116
  Transmission Date: 20230113
  Serious: Yes (Hospitalization, Other)
  Sender: FDA-Public Use
  Company Number: US-BRISTOL-MYERS SQUIBB COMPANY-2022-135635

PATIENT
  Age: 72 Year
  Sex: Male
  Weight: 64 kg

DRUGS (16)
  1. IDECABTAGENE VICLEUCEL [Suspect]
     Active Substance: IDECABTAGENE VICLEUCEL
     Indication: Plasma cell myeloma
     Dosage: DOSE: 450X10^6 CAR+ T CELLS?FREQUENCY: ONCE
     Route: 042
     Dates: start: 20220322, end: 20220322
  2. IBERDOMIDE [Suspect]
     Active Substance: IBERDOMIDE
     Indication: Plasma cell myeloma
     Dosage: THE LAST DOSE OF IBERDOMIDE PRIOR TO THE EVENT WAS ON 08-JUN-2022
     Route: 048
     Dates: start: 20220519
  3. FLUDARABINE [Concomitant]
     Active Substance: FLUDARABINE PHOSPHATE
     Indication: Plasma cell myeloma
     Route: 042
     Dates: start: 20220317, end: 20220319
  4. CYCLOPHOSPHAMIDE [Concomitant]
     Active Substance: CYCLOPHOSPHAMIDE
     Indication: Plasma cell myeloma
     Route: 042
     Dates: start: 20220317, end: 20220319
  5. ACYCLOVIR [Concomitant]
     Active Substance: ACYCLOVIR
     Indication: Prophylaxis
     Dosage: 400 MG
     Route: 048
     Dates: start: 20220321
  6. BENZOCAINE MENTHOL (CEPACOL) [Concomitant]
     Indication: Product used for unknown indication
     Dosage: 15-3.6 MG?FREQUENCY : PRN
     Route: 048
     Dates: start: 20220405, end: 20220719
  7. CHLORHEXIDINE (PERIDEX) [Concomitant]
     Indication: Stomatitis
     Dosage: 15 ML
     Route: 002
     Dates: start: 20220614
  8. PEPCID [Concomitant]
     Active Substance: FAMOTIDINE
     Indication: Sepsis
     Dosage: 20 MG
     Route: 065
     Dates: start: 20220716, end: 20220812
  9. FLUCONAZOLE [Concomitant]
     Active Substance: FLUCONAZOLE
     Indication: Prophylaxis
     Dosage: 400 MG
     Route: 048
     Dates: start: 20220322
  10. FLUTICASONE PROPIONATE (GLUCOCORTICOID) 50 MCG [Concomitant]
     Indication: Rhinitis allergic
     Dosage: DOSE: 2 UNIT NOS?2 SPRAY
     Route: 045
     Dates: start: 20220404
  11. GUAIFENESIN [Concomitant]
     Active Substance: GUAIFENESIN
     Indication: Rhinitis allergic
     Dosage: 600 MG
     Route: 048
     Dates: start: 20220404
  12. LIDOCAINE 5% [Concomitant]
     Active Substance: LIDOCAINE
     Indication: Arthralgia
     Dosage: DOSE: 1 UNIT NOS?1 PATCH
     Route: 062
     Dates: start: 20220719, end: 20220730
  13. PROPOFOL [Concomitant]
     Active Substance: PROPOFOL
     Indication: Sepsis
     Dosage: DOSE: 10 MG/ML/MIN?FREQUENCY: CONTINUOUS
     Route: 042
     Dates: start: 20220615
  14. SULFAMETHOXAZOLE\TRIMETHOPRIM [Concomitant]
     Active Substance: SULFAMETHOXAZOLE\TRIMETHOPRIM
     Indication: Prophylaxis
     Dosage: 800-160 MG
     Route: 048
     Dates: start: 20220323
  15. THIAMINE [Concomitant]
     Active Substance: THIAMINE
     Indication: Sepsis
     Dosage: 100 MG?FREQUENCY : ONCE
     Route: 042
     Dates: start: 20220618
  16. VASOPRESSIN [Concomitant]
     Active Substance: VASOPRESSIN
     Indication: Sepsis
     Dosage: DOSE: 0.04 UNIT NOS?0.04 ANTIBODY UNIT ?FREQUENCY: CONTINUOUS
     Route: 042
     Dates: start: 20220613

REACTIONS (2)
  - Pseudomonas infection [Recovered/Resolved]
  - Infectious pleural effusion [Recovered/Resolved]

NARRATIVE: CASE EVENT DATE: 20220812
